FAERS Safety Report 24219849 (Version 1)
Quarter: 2024Q3

REPORT INFORMATION
  Report Type: Spontaneous
  Country: US (occurrence: US)
  Receive Date: 20240817
  Receipt Date: 20240817
  Transmission Date: 20241017
  Serious: Yes (Hospitalization)
  Sender: UNITED THERAPEUTICS
  Company Number: US-UNITED THERAPEUTICS-UNT-2024-024824

PATIENT

DRUGS (1)
  1. REMODULIN [Suspect]
     Active Substance: TREPROSTINIL
     Indication: Product used for unknown indication
     Dosage: UNK, CONTINUING

REACTIONS (6)
  - Malaise [Recovered/Resolved]
  - Device kink [Recovered/Resolved]
  - Device malfunction [Recovered/Resolved]
  - Patient dissatisfaction with device [Recovered/Resolved]
  - Device operational issue [Recovered/Resolved]
  - Device alarm issue [Recovered/Resolved]

NARRATIVE: CASE EVENT DATE: 20240701
